FAERS Safety Report 24234179 (Version 2)
Quarter: 2025Q1

REPORT INFORMATION
  Report Type: Report from Study
  Country: US (occurrence: US)
  Receive Date: 20240821
  Receipt Date: 20250308
  Transmission Date: 20250409
  Serious: Yes (Hospitalization)
  Sender: ABBVIE
  Company Number: US-ABBVIE-5887015

PATIENT
  Age: 79 Year
  Sex: Female
  Weight: 89 kg

DRUGS (1)
  1. RINVOQ [Suspect]
     Active Substance: UPADACITINIB
     Indication: Product used for unknown indication
     Route: 048

REACTIONS (7)
  - Myocardial infarction [Recovered/Resolved]
  - Urinary tract infection [Unknown]
  - Peripheral swelling [Unknown]
  - Erythema [Unknown]
  - Pain [Unknown]
  - Hypotension [Unknown]
  - Ischaemia [Unknown]

NARRATIVE: CASE EVENT DATE: 20240101
